FAERS Safety Report 12720709 (Version 3)
Quarter: 2016Q3

REPORT INFORMATION
  Report Type: Spontaneous
  Country: IT (occurrence: IT)
  Receive Date: 20160907
  Receipt Date: 20160919
  Transmission Date: 20161109
  Serious: Yes (Hospitalization)
  Sender: FDA-Public Use
  Company Number: IT-BAYER-2016-173042

PATIENT
  Age: 32 Year
  Sex: Female

DRUGS (2)
  1. LEXOTAN [Suspect]
     Active Substance: BROMAZEPAM
     Indication: ANXIETY
     Dosage: 25 MG, ONCE
     Route: 048
     Dates: start: 20160707, end: 20160707
  2. ASPIRINA [Suspect]
     Active Substance: ASPIRIN
     Indication: HEADACHE
     Dosage: 1500 MG, ONCE
     Route: 048
     Dates: start: 20160707, end: 20160707

REACTIONS (2)
  - Loss of consciousness [Recovering/Resolving]
  - Drug abuse [Recovering/Resolving]

NARRATIVE: CASE EVENT DATE: 20160707
